FAERS Safety Report 5209930-4 (Version None)
Quarter: 2006Q4

REPORT INFORMATION
  Report Type: 
  Country: None (occurrence: None)
  Receive Date: 20061128
  Receipt Date: 20060511
  Transmission Date: 20070319
  Serious: Yes (Other)
  Sender: FDA-Public Use
  Company Number: 2006039326

PATIENT
  Age: 75 Year
  Sex: Male

DRUGS (9)
  1. TIKOSYN [Suspect]
     Indication: ATRIAL FIBRILLATION
     Dosage: 500 MCG (250 MCG, 2 IN 1 D)
     Dates: start: 20060201
  2. WARFARIN SODIUM [Concomitant]
  3. BUMEX [Concomitant]
  4. BENICAR [Concomitant]
  5. ASPIRIN [Concomitant]
  6. LIPITOR [Concomitant]
  7. PULMICORT [Concomitant]
  8. ALBUTEROL [Concomitant]
  9. MULTI-VITAMINS [Concomitant]

REACTIONS (1)
  - ATRIAL FIBRILLATION [None]
